FAERS Safety Report 20553766 (Version 2)
Quarter: 2022Q2

REPORT INFORMATION
  Report Type: Report from Study
  Country: US (occurrence: US)
  Receive Date: 20220304
  Receipt Date: 20220413
  Transmission Date: 20220721
  Serious: No
  Sender: FDA-Public Use
  Company Number: US-JNJFOC-20220224222

PATIENT
  Age: 61 Year
  Sex: Female

DRUGS (2)
  1. TREMFYA [Suspect]
     Active Substance: GUSELKUMAB
     Indication: Psoriasis
     Route: 058
     Dates: start: 202009
  2. TREMFYA [Suspect]
     Active Substance: GUSELKUMAB

REACTIONS (6)
  - Syringe issue [Unknown]
  - Device issue [Unknown]
  - Product dose omission issue [Unknown]
  - Accidental exposure to product [Unknown]
  - Product label issue [Unknown]
  - Injection site ulcer [Unknown]

NARRATIVE: CASE EVENT DATE: 20220203
